FAERS Safety Report 8075451-7 (Version None)
Quarter: 2012Q1

REPORT INFORMATION
  Report Type: 
  Country: None (occurrence: None)
  Receive Date: 20120127
  Receipt Date: 20120118
  Transmission Date: 20120608
  Serious: Yes (Other)
  Sender: FDA-Public Use
  Company Number: GB-ABBOTT-12P-167-0895003-00

PATIENT
  Sex: Female
  Weight: 89.7 kg

DRUGS (4)
  1. DICLOFENAC EPOLAMINE [Concomitant]
     Indication: PAIN
     Route: 048
     Dates: start: 20101201
  2. OMEPRAZOLE [Concomitant]
     Indication: PRODUCT USED FOR UNKNOWN INDICATION
  3. ACETAMINOPHEN [Concomitant]
     Indication: PAIN
  4. HUMIRA [Suspect]
     Indication: PSORIATIC ARTHROPATHY
     Dosage: ONGOING
     Route: 058
     Dates: start: 20100401

REACTIONS (3)
  - PAIN [None]
  - DISCOMFORT [None]
  - OSTEONECROSIS [None]
